FAERS Safety Report 8206978-2 (Version None)
Quarter: 2012Q1

REPORT INFORMATION
  Report Type: 
  Country: None (occurrence: None)
  Receive Date: 20120314
  Receipt Date: 20120302
  Transmission Date: 20120608
  Serious: Yes (Hospitalization)
  Sender: FDA-Public Use
  Company Number: CO-ELI_LILLY_AND_COMPANY-CO201203001119

PATIENT
  Age: 79 Year
  Sex: Female

DRUGS (9)
  1. QUETIAPINE [Concomitant]
  2. FORTEO [Suspect]
     Indication: OSTEOPOROSIS
     Dosage: 20 UG, QD
     Route: 058
     Dates: start: 20100201, end: 20110601
  3. FORTEO [Suspect]
     Dosage: 20 UG, QD
     Route: 058
     Dates: start: 20110901
  4. OMEPRAZOLE [Concomitant]
  5. LEVOTHYROXINE SODIUM [Concomitant]
  6. KEPPRA [Concomitant]
  7. PAROXETINE [Concomitant]
  8. ATORVASTATIN [Concomitant]
  9. ENOXAPARIN [Concomitant]

REACTIONS (5)
  - HOSPITALISATION [None]
  - URINARY TRACT INFECTION [None]
  - MEDICAL DEVICE IMPLANTATION [None]
  - PNEUMONIA [None]
  - COLONIC OBSTRUCTION [None]
